FAERS Safety Report 9052226 (Version 1)
Quarter: 2013Q1

REPORT INFORMATION
  Report Type: Spontaneous
  Country: US (occurrence: US)
  Receive Date: 20130206
  Receipt Date: 20130206
  Transmission Date: 20140127
  Serious: Yes (Other)
  Sender: FDA-Public Use
  Company Number: PHEH2013US002912

PATIENT
  Sex: Female

DRUGS (1)
  1. GILENYA [Suspect]
     Indication: MULTIPLE SCLEROSIS
     Dosage: 0.5 MG, QD
     Route: 048
     Dates: start: 201212

REACTIONS (5)
  - Syncope [Unknown]
  - Musculoskeletal pain [Unknown]
  - Head injury [Unknown]
  - Joint injury [Unknown]
  - Back pain [Unknown]
